FAERS Safety Report 17064777 (Version 1)
Quarter: 2019Q4

REPORT INFORMATION
  Report Type: Spontaneous
  Country: FR (occurrence: FR)
  Receive Date: 20191122
  Receipt Date: 20191122
  Transmission Date: 20200122
  Serious: Yes (Other)
  Sender: FDA-Public Use
  Company Number: FR-US-PROVELL PHARMACEUTICALS LLC-9014235

PATIENT
  Age: 67 Year
  Sex: Female
  Weight: 77 kg

DRUGS (3)
  1. LEVOTHYROX NF [Suspect]
     Active Substance: LEVOTHYROXINE SODIUM
     Indication: POST PROCEDURAL HYPOTHYROIDISM
     Dates: start: 20170519, end: 20171118
  2. XELEVIA [Concomitant]
     Active Substance: SITAGLIPTIN PHOSPHATE
     Indication: TYPE 2 DIABETES MELLITUS
  3. LEVOTHYROX NF [Suspect]
     Active Substance: LEVOTHYROXINE SODIUM
     Dosage: SINCE JUN 2017, THE PATIENT TOOK THE NEW FORMULATION OF LEVOTHYROX 100, 125, 100 ALTERNATELY.
     Dates: start: 2017

REACTIONS (22)
  - Loss of personal independence in daily activities [Recovering/Resolving]
  - Fatigue [Recovered/Resolved]
  - Red blood cell sedimentation rate increased [Unknown]
  - Muscle spasms [Recovering/Resolving]
  - Asthenia [Recovering/Resolving]
  - Tenosynovitis stenosans [Not Recovered/Not Resolved]
  - Affective disorder [Not Recovered/Not Resolved]
  - Onychoclasis [Unknown]
  - Blood glucose increased [Unknown]
  - Depression [Unknown]
  - Pain [Unknown]
  - C-reactive protein increased [Unknown]
  - Osteoarthritis [Unknown]
  - Arthralgia [Recovering/Resolving]
  - Abdominal pain [Recovering/Resolving]
  - Tearfulness [Unknown]
  - Mood swings [Recovering/Resolving]
  - Alopecia [Not Recovered/Not Resolved]
  - Dyspnoea [Recovering/Resolving]
  - Hot flush [Recovering/Resolving]
  - Myalgia [Recovering/Resolving]
  - Glycosylated haemoglobin increased [Unknown]

NARRATIVE: CASE EVENT DATE: 2017
